FAERS Safety Report 9693095 (Version 1)
Quarter: 2013Q4

REPORT INFORMATION
  Report Type: Spontaneous
  Country: US (occurrence: None)
  Receive Date: 20131115
  Receipt Date: 20131115
  Transmission Date: 20140711
  Serious: Yes (Other)
  Sender: FDA-Public Use
  Company Number: None

PATIENT
  Age: 59 Year
  Sex: Female

DRUGS (12)
  1. ATORVASTATIN [Suspect]
     Dates: start: 201205, end: 20120720
  2. ASPIRIN [Concomitant]
  3. GLUCOPHAGE [Concomitant]
  4. INSULIN [Concomitant]
  5. SYNTHROID [Concomitant]
  6. VASOTEC [Concomitant]
  7. CALCIUM-VIT-D [Concomitant]
  8. MULTIVITAMINS [Concomitant]
  9. OMEGA-3 [Concomitant]
  10. GLUCOSAMINE CHONROINTIN [Concomitant]
  11. VIT. D [Concomitant]
  12. VITAMIN E WITH MIXED TOCOPHEROLS [Concomitant]

REACTIONS (5)
  - Aspartate aminotransferase increased [None]
  - Blood bilirubin increased [None]
  - Blood alkaline phosphatase increased [None]
  - Jaundice [None]
  - Smooth muscle antibody positive [None]
